FAERS Safety Report 4709596-3 (Version None)
Quarter: 2005Q3

REPORT INFORMATION
  Report Type: 
  Country: None (occurrence: None)
  Receive Date: 20050706
  Receipt Date: 20050701
  Transmission Date: 20060218
  Serious: Yes (Hospitalization)
  Sender: FDA-Public Use
  Company Number: 200512033GDS

PATIENT
  Age: 61 Year
  Sex: Female

DRUGS (4)
  1. MOXIFLOXACIN HCL [Suspect]
     Dosage: 400 MG, QD, ORAL
     Route: 048
     Dates: end: 20050311
  2. BECLOMETHASONE DIPROPIONATE [Suspect]
     Dosage: RESPIRATORY (INHALATION)
     Route: 055
     Dates: start: 20050301, end: 20050318
  3. FORMOTEROL [Concomitant]
  4. COLECALCIFEROL CA [Concomitant]

REACTIONS (7)
  - BLOOD PRESSURE DECREASED [None]
  - EOSINOPHILIA [None]
  - METABOLIC ACIDOSIS [None]
  - PURPURA [None]
  - RASH [None]
  - RESPIRATORY FAILURE [None]
  - THROMBOCYTOPENIA [None]
